FAERS Safety Report 7534503-8 (Version None)
Quarter: 2011Q2

REPORT INFORMATION
  Report Type: 
  Country: None (occurrence: None)
  Receive Date: 20110609
  Receipt Date: 20090511
  Transmission Date: 20111010
  Serious: Yes (Hospitalization)
  Sender: FDA-Public Use
  Company Number: PHHY2009JP09661

PATIENT
  Sex: Female

DRUGS (4)
  1. ADALAT CC [Concomitant]
     Indication: HYPERTENSION
     Dosage: 20 MG, UNK
     Route: 048
     Dates: start: 20060324
  2. DIOVAN [Suspect]
     Indication: HYPERTENSION
     Dosage: 80 MG, QD
     Route: 048
     Dates: start: 20080209
  3. PRAVASTATIN SODIUM [Concomitant]
     Dosage: 50 MG, UNK
     Route: 048
     Dates: start: 20041119
  4. ZOLPIDEM [Concomitant]
     Dosage: 10 MG, UNK
     Route: 048
     Dates: start: 20041119

REACTIONS (3)
  - NAUSEA [None]
  - DIZZINESS [None]
  - MENIERE'S DISEASE [None]
